FAERS Safety Report 21025922 (Version 3)
Quarter: 2022Q3

REPORT INFORMATION
  Report Type: Spontaneous
  Country: US (occurrence: US)
  Receive Date: 20220630
  Receipt Date: 20220708
  Transmission Date: 20221026
  Serious: No
  Sender: FDA-Public Use
  Company Number: US-SANOFI-01164565

PATIENT
  Age: 52 Year
  Sex: Female

DRUGS (1)
  1. LANTUS SOLOSTAR [Suspect]
     Active Substance: INSULIN GLARGINE
     Indication: Type 2 diabetes mellitus
     Dosage: 35 UNITS AM 35 UNITS PM

REACTIONS (2)
  - Blood glucose increased [Unknown]
  - Inappropriate schedule of product administration [Unknown]
